FAERS Safety Report 6198018-4 (Version None)
Quarter: 2009Q2

REPORT INFORMATION
  Report Type: 
  Country: None (occurrence: None)
  Receive Date: 20090521
  Receipt Date: 20090515
  Transmission Date: 20091009
  Serious: Yes (Other)
  Sender: FDA-Public Use
  Company Number: FR-ASTRAZENECA-2008CG01873

PATIENT
  Age: 24 Year
  Sex: Female

DRUGS (12)
  1. NAROPIN [Suspect]
     Indication: NERVE BLOCK
     Route: 053
     Dates: start: 20080317, end: 20080317
  2. NAROPIN [Suspect]
     Indication: POSTOPERATIVE CARE
     Route: 053
     Dates: start: 20080317, end: 20080317
  3. NAROPIN [Suspect]
     Route: 053
     Dates: start: 20080317, end: 20080318
  4. NAROPIN [Suspect]
     Route: 053
     Dates: start: 20080317, end: 20080318
  5. DIPRIVAN [Concomitant]
     Indication: GENERAL ANAESTHESIA
     Route: 042
  6. SUFENTANIL [Concomitant]
     Indication: GENERAL ANAESTHESIA
     Route: 042
  7. DROLEPTAN [Concomitant]
     Indication: PROPHYLAXIS OF NAUSEA AND VOMITING
     Route: 042
  8. DROLEPTAN [Concomitant]
     Route: 042
  9. SEVORANE [Concomitant]
     Indication: GENERAL ANAESTHESIA
  10. MORPHINE [Concomitant]
     Indication: GENERAL ANAESTHESIA
     Route: 042
  11. DAFALGAN [Concomitant]
     Indication: GENERAL ANAESTHESIA
     Route: 042
  12. KETOPROFEN [Concomitant]
     Indication: GENERAL ANAESTHESIA
     Route: 042

REACTIONS (1)
  - MONOPLEGIA [None]
